FAERS Safety Report 5722636-8 (Version None)
Quarter: 2008Q2

REPORT INFORMATION
  Report Type: 
  Country: None (occurrence: None)
  Receive Date: 20080425
  Receipt Date: 20080414
  Transmission Date: 20081010
  Serious: Yes (Death, Other)
  Sender: FDA-Public Use
  Company Number: OSCN-PR-0804L-0218

PATIENT
  Age: 51 Year
  Sex: Female

DRUGS (1)
  1. OMNISCAN [Suspect]
     Indication: DRUG USE FOR UNKNOWN INDICATION
     Dosage: MULTIPLE ADMINISTRATIONS, SINGLE DOSE, I.V.; SINGLE DOSE
     Route: 042

REACTIONS (7)
  - DIALYSIS [None]
  - HYPOTENSION [None]
  - NEPHROGENIC SYSTEMIC FIBROSIS [None]
  - RENAL IMPAIRMENT [None]
  - RESPIRATORY FAILURE [None]
  - SEPSIS [None]
  - SUDDEN CARDIAC DEATH [None]
